FAERS Safety Report 9436748 (Version 1)
Quarter: 2013Q3

REPORT INFORMATION
  Report Type: Spontaneous
  Country: AT (occurrence: AT)
  Receive Date: 20130802
  Receipt Date: 20130802
  Transmission Date: 20140515
  Serious: Yes (Death, Other)
  Sender: FDA-Public Use
  Company Number: AT-JNJFOC-20130715917

PATIENT
  Sex: 0

DRUGS (7)
  1. ABCIXIMAB [Suspect]
     Indication: PERCUTANEOUS CORONARY INTERVENTION
     Route: 065
  2. ABCIXIMAB [Suspect]
     Indication: ACUTE CORONARY SYNDROME
     Route: 065
  3. HEPARIN [Suspect]
     Indication: PERCUTANEOUS CORONARY INTERVENTION
     Route: 065
  4. HEPARIN [Suspect]
     Indication: ACUTE CORONARY SYNDROME
     Route: 065
  5. ASPIRIN [Suspect]
     Indication: PERCUTANEOUS CORONARY INTERVENTION
     Route: 065
  6. ASPIRIN [Suspect]
     Indication: ACUTE CORONARY SYNDROME
     Route: 065
  7. CLOPIDOGREL [Suspect]
     Indication: ANTIPLATELET THERAPY
     Route: 065

REACTIONS (2)
  - Death [Fatal]
  - Haemorrhage [Unknown]
